FAERS Safety Report 7008708-9 (Version None)
Quarter: 2010Q3

REPORT INFORMATION
  Report Type: 
  Country: None (occurrence: None)
  Receive Date: 20100921
  Receipt Date: 20100913
  Transmission Date: 20110219
  Serious: Yes (Life-Threatening)
  Sender: FDA-Public Use
  Company Number: A-CH2010-39742

PATIENT
  Sex: Female

DRUGS (3)
  1. TRACLEER [Suspect]
     Indication: PULMONARY ARTERIAL HYPERTENSION
     Dosage: 31.25 MG, BID; ORAL
     Route: 048
     Dates: start: 20100906, end: 20100910
  2. DIURETICS [Concomitant]
  3. EPOPROSTENOL SODIUM [Concomitant]

REACTIONS (1)
  - TORSADE DE POINTES [None]
